FAERS Safety Report 20527082 (Version 5)
Quarter: 2022Q3

REPORT INFORMATION
  Report Type: Report from Study
  Country: DE (occurrence: DE)
  Receive Date: 20220228
  Receipt Date: 20220707
  Transmission Date: 20221027
  Serious: Yes (Life-Threatening, Hospitalization, Other)
  Sender: FDA-Public Use
  Company Number: DE-AMGEN-DEUCT2022033983

PATIENT
  Age: 60 Year
  Sex: Male
  Weight: 107 kg

DRUGS (9)
  1. CARFILZOMIB [Suspect]
     Active Substance: CARFILZOMIB
     Indication: Plasma cell myeloma
     Dosage: 47-84.6 MILLIGRAM, PER CHEMO REGIM
     Route: 042
     Dates: start: 20191104, end: 20210107
  2. FILGRASTIM [Suspect]
     Active Substance: FILGRASTIM
     Indication: Leukopenia
     Dosage: UNK
     Route: 058
  3. ELOTUZUMAB [Suspect]
     Active Substance: ELOTUZUMAB
     Indication: Plasma cell myeloma
     Dosage: 1200-2200 MILLIGRAM, PER CHEMO REGIM
     Route: 042
     Dates: start: 20191104, end: 20220104
  4. REVLIMID [Suspect]
     Active Substance: LENALIDOMIDE
     Indication: Plasma cell myeloma
     Dosage: 10-25 MILLIGRAM PER CHEMO REGIM
     Route: 048
     Dates: start: 20191104, end: 20220201
  5. DEXAMETHASONE [Suspect]
     Active Substance: DEXAMETHASONE
     Indication: Plasma cell myeloma
     Dosage: 8 -40 MILLIGRAM, PER CHEMO REGIM
     Route: 042
     Dates: start: 20191104, end: 20220104
  6. PLERIXAFOR [Suspect]
     Active Substance: PLERIXAFOR
     Indication: Haematopoietic stem cell mobilisation
     Dosage: 0.24 MILLIGRAM/KILOGRAM, QD
     Route: 058
     Dates: start: 20200218, end: 20200218
  7. CYCLOPHOSPHAMIDE [Suspect]
     Active Substance: CYCLOPHOSPHAMIDE
     Indication: Haematopoietic stem cell mobilisation
     Dosage: 4.5 UNK, QD
     Route: 042
     Dates: start: 20200131, end: 20200131
  8. MELPHALAN [Suspect]
     Active Substance: MELPHALAN
     Indication: Prophylaxis
     Dosage: 200 MILLIGRAM/SQ. METER, QD
     Route: 042
     Dates: start: 20200626, end: 20200627
  9. VALSARTAN [Concomitant]
     Active Substance: VALSARTAN
     Indication: Hypertension
     Dosage: 240 MILLIGRAM, QD
     Route: 048

REACTIONS (1)
  - Acute myeloid leukaemia [Recovered/Resolved]

NARRATIVE: CASE EVENT DATE: 20220217
